FAERS Safety Report 6903447-4 (Version None)
Quarter: 2010Q3

REPORT INFORMATION
  Report Type: 
  Country: None (occurrence: None)
  Receive Date: 20100803
  Receipt Date: 20081004
  Transmission Date: 20110219
  Serious: No
  Sender: FDA-Public Use
  Company Number: US-PFIZER INC-2008016473

PATIENT
  Sex: Female
  Weight: 73.9 kg

DRUGS (12)
  1. LYRICA [Suspect]
     Indication: POST HERPETIC NEURALGIA
     Route: 048
     Dates: start: 20070501
  2. LYRICA [Suspect]
     Indication: NEURALGIA
  3. ULTRAM [Suspect]
     Indication: POST HERPETIC NEURALGIA
     Dates: start: 20070601
  4. PLENDIL [Concomitant]
     Dates: start: 20010901
  5. ACETYLSALICYLIC ACID SRT [Concomitant]
     Dates: start: 20010401
  6. PRILOSEC [Concomitant]
     Dates: start: 20011101
  7. ESTRADIOL [Concomitant]
     Dates: start: 20020401
  8. LASIX [Concomitant]
     Dates: start: 20020701
  9. PREDNISONE [Concomitant]
     Dates: start: 20021001
  10. METFORMIN HCL [Concomitant]
     Dates: start: 20030501
  11. LISINOPRIL [Concomitant]
     Dates: start: 20030701
  12. LOPRESSOR [Concomitant]
     Dates: start: 20030901

REACTIONS (8)
  - ABDOMINAL PAIN [None]
  - BALANCE DISORDER [None]
  - DIARRHOEA [None]
  - DYSKINESIA [None]
  - ESCHERICHIA URINARY TRACT INFECTION [None]
  - INSOMNIA [None]
  - RASH [None]
  - VISION BLURRED [None]
